FAERS Safety Report 17416070 (Version 1)
Quarter: 2020Q1

REPORT INFORMATION
  Report Type: Spontaneous
  Country: US (occurrence: US)
  Receive Date: 20200130
  Receipt Date: 20200130
  Transmission Date: 20200409
  Serious: No
  Sender: FDA-Public Use
  Company Number: None

PATIENT

DRUGS (1)
  1. REMICADE [Suspect]
     Active Substance: INFLIXIMAB
     Route: 042
     Dates: start: 201908, end: 202001

REACTIONS (2)
  - Drug ineffective [None]
  - Drug specific antibody present [None]

NARRATIVE: CASE EVENT DATE: 20200105
